FAERS Safety Report 7230048-3 (Version None)
Quarter: 2011Q1

REPORT INFORMATION
  Report Type: 
  Country: None (occurrence: None)
  Receive Date: 20110118
  Receipt Date: 20110110
  Transmission Date: 20110831
  Serious: Yes (Other)
  Sender: FDA-Public Use
  Company Number: US-BIOGENIDEC-2011BI001199

PATIENT
  Age: 39 Year
  Sex: Female

DRUGS (2)
  1. TYSABRI [Suspect]
     Indication: MULTIPLE SCLEROSIS
     Route: 042
     Dates: start: 20080502
  2. SEIZURE MEDICATION (NOS) [Concomitant]
     Indication: CONVULSION

REACTIONS (3)
  - MULTIPLE SCLEROSIS RELAPSE [None]
  - STRESS [None]
  - CONVULSION [None]
